FAERS Safety Report 13806781 (Version 2)
Quarter: 2017Q4

REPORT INFORMATION
  Report Type: Report from Study
  Country: US (occurrence: US)
  Receive Date: 20170728
  Receipt Date: 20171108
  Transmission Date: 20180320
  Serious: Yes (Other)
  Sender: FDA-Public Use
  Company Number: US-AMGEN-USASL2017105047

PATIENT
  Age: 77 Year
  Sex: Female
  Weight: 81.63 kg

DRUGS (1)
  1. REPATHA [Suspect]
     Active Substance: EVOLOCUMAB
     Indication: HYPERCHOLESTEROLAEMIA
     Dosage: 140 MG, Q2WK
     Route: 065
     Dates: start: 201606, end: 20170721

REACTIONS (4)
  - Muscle spasms [Recovered/Resolved]
  - Mobility decreased [Recovered/Resolved]
  - Arthralgia [Unknown]
  - Myalgia [Unknown]

NARRATIVE: CASE EVENT DATE: 20170609
